FAERS Safety Report 16124954 (Version 3)
Quarter: 2019Q4

REPORT INFORMATION
  Report Type: Spontaneous
  Country: US (occurrence: US)
  Receive Date: 20190327
  Receipt Date: 20191216
  Transmission Date: 20200122
  Serious: No
  Sender: FDA-Public Use
  Company Number: US-PFIZER INC-2019124450

PATIENT
  Age: 13 Year
  Sex: Female
  Weight: 31.74 kg

DRUGS (2)
  1. GENOTROPIN [Suspect]
     Active Substance: SOMATROPIN
     Indication: GROWTH HORMONE DEFICIENCY
  2. GENOTROPIN [Suspect]
     Active Substance: SOMATROPIN
     Indication: HYPOPITUITARISM
     Dosage: 3 MG, DAILY
     Route: 058

REACTIONS (3)
  - Poor quality device used [Unknown]
  - Device issue [Unknown]
  - Product dose omission [Unknown]
